FAERS Safety Report 5661063-9 (Version None)
Quarter: 2008Q1

REPORT INFORMATION
  Report Type: 
  Country: None (occurrence: None)
  Receive Date: 20080311
  Receipt Date: 20080228
  Transmission Date: 20080703
  Serious: Yes (Other)
  Sender: FDA-Public Use
  Company Number: US-WYE-H02862008

PATIENT

DRUGS (1)
  1. PROTONIX [Suspect]
     Dosage: UNKNOWN
     Route: 042

REACTIONS (2)
  - ACINETOBACTER BACTERAEMIA [None]
  - CLOSTRIDIUM DIFFICILE COLITIS [None]
